FAERS Safety Report 25630943 (Version 1)
Quarter: 2025Q3

REPORT INFORMATION
  Report Type: Spontaneous
  Country: CN (occurrence: CN)
  Receive Date: 20250801
  Receipt Date: 20250801
  Transmission Date: 20251021
  Serious: Yes (Hospitalization)
  Sender: ROCHE
  Company Number: CN-ROCHE-10000352863

PATIENT
  Age: 57 Year
  Sex: Female

DRUGS (3)
  1. RITUXIMAB [Suspect]
     Active Substance: RITUXIMAB
     Indication: Glomerulonephritis membranous
     Route: 042
     Dates: start: 20250713, end: 20250713
  2. budesonide aerosol [Concomitant]
     Indication: Muscle spasms
  3. DEXAMETHASONE [Concomitant]
     Active Substance: DEXAMETHASONE
     Indication: Muscle spasms
     Route: 042

REACTIONS (2)
  - Hypersensitivity [Recovering/Resolving]
  - Off label use [Unknown]

NARRATIVE: CASE EVENT DATE: 20250713
